FAERS Safety Report 5938192-5 (Version None)
Quarter: 2008Q4

REPORT INFORMATION
  Report Type: 
  Country: None (occurrence: None)
  Receive Date: 20081031
  Receipt Date: 20081017
  Transmission Date: 20090506
  Serious: Yes (Death)
  Sender: FDA-Public Use
  Company Number: IT-GENENTECH-270442

PATIENT
  Sex: Male

DRUGS (4)
  1. MABTHERA [Suspect]
     Indication: B-CELL SMALL LYMPHOCYTIC LYMPHOMA
     Dosage: 590 MG, UNK
     Route: 042
     Dates: start: 20081015, end: 20081015
  2. PERFALGAN [Concomitant]
     Indication: DRUG USE FOR UNKNOWN INDICATION
     Dosage: UNK
     Dates: start: 20081015, end: 20081015
  3. TRIMETON [Concomitant]
     Indication: DRUG USE FOR UNKNOWN INDICATION
     Dosage: UNK
     Dates: start: 20081015, end: 20081015
  4. NEXIUM [Concomitant]
     Indication: DRUG USE FOR UNKNOWN INDICATION
     Dosage: UNK
     Dates: start: 20081015, end: 20081015

REACTIONS (4)
  - ACUTE PULMONARY OEDEMA [None]
  - DYSPNOEA [None]
  - HYPERTENSIVE CRISIS [None]
  - TACHYCARDIA [None]
